FAERS Safety Report 8576815-5 (Version None)
Quarter: 2012Q3

REPORT INFORMATION
  Report Type: 
  Country: None (occurrence: None)
  Receive Date: 20120807
  Receipt Date: 20120803
  Transmission Date: 20120928
  Serious: Yes (Hospitalization)
  Sender: FDA-Public Use
  Company Number: US-AMGEN-US309971

PATIENT
  Age: 46 Year
  Sex: Male
  Weight: 111 kg

DRUGS (7)
  1. RENAGEL [Concomitant]
     Dosage: 1600 MG, UNK
  2. CINACALCET HYDROCHLORIDE [Suspect]
     Indication: HYPERPARATHYROIDISM SECONDARY
     Dosage: UNK UNK, QD
     Route: 048
     Dates: start: 20070706
  3. METOPROLOL TARTRATE [Concomitant]
     Dosage: 50 MG, BID
     Route: 048
  4. NORTRIPTYLINE HCL [Concomitant]
     Dosage: 150 MG, QD
     Route: 048
  5. PHOSLO [Concomitant]
     Dosage: 2001 MG, TID
     Route: 048
  6. CLOPIDOGREL BISULFATE [Concomitant]
  7. WARFARIN SODIUM [Concomitant]

REACTIONS (2)
  - HYPOCALCAEMIA [None]
  - SYNCOPE [None]
